FAERS Safety Report 16024107 (Version 1)
Quarter: 2019Q1

REPORT INFORMATION
  Report Type: Spontaneous
  Country: US (occurrence: US)
  Receive Date: 20190301
  Receipt Date: 20190301
  Transmission Date: 20190418
  Serious: No
  Sender: FDA-Public Use
  Company Number: US-ASTRAZENECA-2019SE19009

PATIENT
  Age: 22601 Day
  Sex: Male
  Weight: 74.8 kg

DRUGS (1)
  1. BYDUREON [Suspect]
     Active Substance: EXENATIDE
     Indication: TYPE 2 DIABETES MELLITUS
     Route: 058
     Dates: start: 20190122

REACTIONS (6)
  - Constipation [Unknown]
  - Wrong technique in product usage process [Not Recovered/Not Resolved]
  - Incorrect dose administered by device [Not Recovered/Not Resolved]
  - Injection site pain [Unknown]
  - Injection site extravasation [Unknown]
  - Device leakage [Unknown]

NARRATIVE: CASE EVENT DATE: 20190122
